FAERS Safety Report 8602584-6 (Version None)
Quarter: 2012Q3

REPORT INFORMATION
  Report Type: 
  Country: None (occurrence: None)
  Receive Date: 20120817
  Receipt Date: 20120815
  Transmission Date: 20120928
  Serious: Yes (Other)
  Sender: FDA-Public Use
  Company Number: PHHY2012CA064130

PATIENT
  Sex: Female

DRUGS (7)
  1. GILENYA [Suspect]
     Indication: RELAPSING-REMITTING MULTIPLE SCLEROSIS
     Dosage: 0.5 MG, QD
     Route: 048
     Dates: start: 20120719
  2. ZOPICLONE [Concomitant]
  3. AMITRIPTYLINE HCL [Concomitant]
  4. DICETEL [Concomitant]
  5. TRAZODONE HYDROCHLORIDE [Concomitant]
  6. EFFEXOR [Concomitant]
  7. VENTOLIN [Concomitant]

REACTIONS (4)
  - CHEST DISCOMFORT [None]
  - BRADYCARDIA [None]
  - BLOOD PRESSURE DECREASED [None]
  - ANXIETY [None]
